FAERS Safety Report 8936608 (Version 1)
Quarter: 2012Q4

REPORT INFORMATION
  Report Type: 
  Country: US (occurrence: US)
  Receive Date: 20121130
  Receipt Date: 20121130
  Transmission Date: 20130627
  Serious: Yes (Death)
  Sender: FDA-Public Use
  Company Number: PHEH2012US022251

PATIENT
  Age: 83 Year
  Sex: Female
  Weight: 66.21 kg

DRUGS (10)
  1. GLEEVEC [Suspect]
     Indication: CHRONIC MYELOID LEUKAEMIA
     Dosage: 400 mg, daily
     Route: 048
     Dates: start: 200201, end: 20020703
  2. GLEEVEC [Suspect]
     Dosage: 300 mg, daily
     Route: 048
     Dates: start: 200208, end: 200209
  3. GLEEVEC [Suspect]
     Dosage: 200 mg, daily
     Route: 048
     Dates: start: 20070911
  4. GLEEVEC [Suspect]
     Dosage: 100 mg, daily
     Route: 048
     Dates: start: 20120822, end: 20120928
  5. LISINOPRIL [Concomitant]
     Dosage: 20 mg, daily
     Route: 048
     Dates: start: 20100813
  6. CARVEDILOL [Concomitant]
     Dosage: 25 mg, BID
     Route: 048
     Dates: start: 20100813
  7. ACETYLSALICYLIC ACID [Concomitant]
     Dosage: 81 mg, Udaily
     Route: 048
     Dates: start: 20101213
  8. PRAVASTATIN [Concomitant]
     Dosage: 40 mg, UNK
     Route: 048
     Dates: start: 20101213
  9. ATENOLOL [Concomitant]
     Dosage: 50 mg, BID
     Route: 048
  10. NORVASC [Concomitant]
     Dosage: 5 mg, UNK
     Route: 048
     Dates: start: 20101213

REACTIONS (2)
  - Death [Fatal]
  - Anaemia [Recovering/Resolving]
